FAERS Safety Report 12383787 (Version 1)
Quarter: 2016Q2

REPORT INFORMATION
  Report Type: Spontaneous
  Country: JP (occurrence: JP)
  Receive Date: 20160519
  Receipt Date: 20160519
  Transmission Date: 20160815
  Serious: Yes (Other)
  Sender: FDA-Public Use
  Company Number: JP-ROCHE-1736546

PATIENT
  Age: 54 Year
  Sex: Female
  Weight: 37 kg

DRUGS (12)
  1. GASCON [Concomitant]
     Active Substance: DIMETHICONE
     Indication: CROHN^S DISEASE
     Route: 048
  2. ACTEMRA [Suspect]
     Active Substance: TOCILIZUMAB
     Indication: RHEUMATOID ARTHRITIS
     Route: 041
  3. CYTOTEC [Concomitant]
     Active Substance: MISOPROSTOL
     Indication: CROHN^S DISEASE
     Route: 048
  4. ACTEMRA [Suspect]
     Active Substance: TOCILIZUMAB
     Indication: RHEUMATOID ARTHRITIS
     Route: 058
     Dates: start: 20160318
  5. PREDNISOLONE. [Concomitant]
     Active Substance: PREDNISOLONE
     Indication: RHEUMATOID ARTHRITIS
     Dosage: DURING 30MG-10MG, FRACTIONATION DOSE UNCERTAIN FREQUENCY, AND DOSE INTERVAL UNCERTAINTY
     Route: 065
     Dates: start: 2002
  6. PROGRAF [Concomitant]
     Active Substance: TACROLIMUS\TACROLIMUS ANHYDROUS
     Indication: RHEUMATOID ARTHRITIS
     Dosage: 1MG-3MG, FRACTIONATION DOSE UNCERTAIN FREQUENCY, AND DOSE INTERVAL UNCERTAINTY
     Route: 065
     Dates: start: 20091030
  7. GASTROM [Concomitant]
     Active Substance: ECABET
     Indication: CROHN^S DISEASE
     Route: 048
  8. CALONAL [Concomitant]
     Active Substance: ACETAMINOPHEN
     Indication: RHEUMATOID ARTHRITIS
     Route: 048
  9. PREDNISOLONE. [Concomitant]
     Active Substance: PREDNISOLONE
     Route: 041
  10. PROGRAF [Concomitant]
     Active Substance: TACROLIMUS\TACROLIMUS ANHYDROUS
     Indication: RHEUMATOID ARTHRITIS
     Route: 048
  11. NEXIUM [Concomitant]
     Active Substance: ESOMEPRAZOLE MAGNESIUM
     Indication: CROHN^S DISEASE
     Route: 048
  12. PENTASA [Concomitant]
     Active Substance: MESALAMINE
     Indication: CROHN^S DISEASE
     Route: 048

REACTIONS (1)
  - Drug eruption [Recovered/Resolved]

NARRATIVE: CASE EVENT DATE: 20160319
